FAERS Safety Report 10144491 (Version 1)
Quarter: 2014Q2

REPORT INFORMATION
  Report Type: Spontaneous
  Country: US (occurrence: US)
  Receive Date: 20140430
  Receipt Date: 20140430
  Transmission Date: 20141212
  Serious: No
  Sender: FDA-Public Use
  Company Number: US-GILEAD-2014-0100937

PATIENT
  Age: 70 Year
  Sex: Female
  Weight: 68.27 kg

DRUGS (3)
  1. SOVALDI [Suspect]
     Indication: HEPATITIS C
     Dosage: 400 MG, UNK
     Route: 065
     Dates: start: 20140227
  2. RIBAVIRIN [Concomitant]
     Dosage: 1200 MG, UNK
  3. RIBAVIRIN [Concomitant]
     Dosage: 600 UNK, UNK

REACTIONS (1)
  - Anaemia [Unknown]
